FAERS Safety Report 18871169 (Version 3)
Quarter: 2021Q4

REPORT INFORMATION
  Report Type: Other
  Country: CN (occurrence: CN)
  Receive Date: 20210210
  Receipt Date: 20211022
  Transmission Date: 20220303
  Serious: Yes (Other)
  Sender: FDA-Public Use
  Company Number: CN-ROCHE-2695436

PATIENT

DRUGS (3)
  1. CAPECITABINE [Suspect]
     Active Substance: CAPECITABINE
     Indication: Colorectal cancer metastatic
     Dosage: ON DAY 1-14
     Route: 048
  2. OXALIPLATIN [Suspect]
     Active Substance: OXALIPLATIN
     Indication: Colorectal cancer metastatic
     Dosage: DAY 1
     Route: 042
  3. CATEQUENTINIB [Suspect]
     Active Substance: CATEQUENTINIB
     Indication: Colorectal cancer metastatic
     Route: 048

REACTIONS (14)
  - Neutropenia [Unknown]
  - Hypertension [Unknown]
  - Diarrhoea [Unknown]
  - Hypertriglyceridaemia [Unknown]
  - Vomiting [Unknown]
  - Palmar-plantar erythrodysaesthesia syndrome [Unknown]
  - White blood cell count decreased [Unknown]
  - Hepatic function abnormal [Unknown]
  - Blood bilirubin increased [Unknown]
  - Leukopenia [Unknown]
  - Hyperbilirubinaemia [Unknown]
  - Alanine aminotransferase increased [Unknown]
  - Intestinal obstruction [Unknown]
  - Nausea [Unknown]
